FAERS Safety Report 4413096-8 (Version None)
Quarter: 2004Q3

REPORT INFORMATION
  Report Type: 
  Country: None (occurrence: None)
  Receive Date: 20040802
  Receipt Date: 20040802
  Transmission Date: 20050211
  Serious: No
  Sender: FDA-Public Use
  Company Number: None

PATIENT
  Age: 53 Year
  Sex: Male
  Weight: 79.6 kg

DRUGS (1)
  1. TRAZODONE HCL [Suspect]
     Dosage: 50 MG HS OTHER
     Route: 050
     Dates: start: 20040630, end: 20040707

REACTIONS (1)
  - LIVER FUNCTION TEST ABNORMAL [None]
